FAERS Safety Report 5534479-9 (Version None)
Quarter: 2007Q4

REPORT INFORMATION
  Report Type: 
  Country: None (occurrence: None)
  Receive Date: 20071205
  Receipt Date: 20071129
  Transmission Date: 20080405
  Serious: Yes (Other)
  Sender: FDA-Public Use
  Company Number: FR-ASTRAZENECA-2007CG01702

PATIENT
  Age: 65 Year
  Sex: Female

DRUGS (2)
  1. INEXIUM [Suspect]
     Indication: GASTRITIS
     Route: 048
     Dates: start: 20070301
  2. DEBRIDAT [Concomitant]

REACTIONS (1)
  - RETINAL VEIN THROMBOSIS [None]
